FAERS Safety Report 6992587-X (Version None)
Quarter: 2010Q3

REPORT INFORMATION
  Report Type: 
  Country: None (occurrence: None)
  Receive Date: 20100915
  Receipt Date: 20100823
  Transmission Date: 20110219
  Serious: Yes (Death)
  Sender: FDA-Public Use
  Company Number: BVT-000631

PATIENT
  Age: 64 Year
  Sex: Female

DRUGS (1)
  1. KINERET [Suspect]
     Indication: RHEUMATOID ARTHRITIS
     Dosage: (100 MG SUBCUTANEOUS)
     Route: 058
     Dates: start: 20060613, end: 20100616

REACTIONS (1)
  - CARDIOPULMONARY FAILURE [None]
